FAERS Safety Report 4296993-6 (Version None)
Quarter: 2004Q1

REPORT INFORMATION
  Report Type: 
  Country: None (occurrence: None)
  Receive Date: 20040213
  Receipt Date: 20040205
  Transmission Date: 20041129
  Serious: Yes (Hospitalization)
  Sender: FDA-Public Use
  Company Number: 04P-056-0249689-00

PATIENT
  Age: 73 Year
  Sex: Female

DRUGS (6)
  1. ISOPTIN [Suspect]
     Dosage: 240 MG, PER ORAL
     Route: 048
     Dates: end: 20000316
  2. NAFTAZONE [Suspect]
     Dosage: 10 MG, PER ORAL
     Route: 048
     Dates: end: 20000315
  3. URAPIDIL [Suspect]
     Dosage: 60 MG, PER ORAL
     Route: 048
     Dates: end: 20000316
  4. BROMAZEPAM [Suspect]
     Dosage: 2 DOSAGE FORMS, PER ORAL
     Route: 048
  5. SPIRONOLACTONE [Suspect]
     Dosage: 50 MG, PER ORAL
     Route: 048
     Dates: end: 20000314
  6. HYZAAR [Suspect]
     Dosage: 1 DOSAGE FORMS, PER ORAL
     Route: 048
     Dates: end: 20000316

REACTIONS (3)
  - ASTHENIA [None]
  - HYPONATRAEMIA [None]
  - VERTIGO [None]
